FAERS Safety Report 8019246-9 (Version None)
Quarter: 2012Q1

REPORT INFORMATION
  Report Type: 
  Country: None (occurrence: None)
  Receive Date: 20120103
  Receipt Date: 20111220
  Transmission Date: 20120608
  Serious: Yes (Hospitalization, Other)
  Sender: FDA-Public Use
  Company Number: US-UCBSA-047904

PATIENT
  Age: 60 Year
  Sex: Male
  Weight: 89.35 kg

DRUGS (6)
  1. VIMPAT [Suspect]
     Indication: EPILEPSY
     Route: 048
     Dates: start: 20111216, end: 20111216
  2. VIMPAT [Suspect]
     Route: 048
     Dates: start: 20111215, end: 20111215
  3. ASPIRIN [Concomitant]
     Route: 048
  4. BENZTROPINE MESYLATE [Concomitant]
     Route: 048
  5. HALOPERIDOL [Concomitant]
     Route: 048
  6. CLONAZEPAM [Concomitant]
     Route: 048

REACTIONS (1)
  - RASH MACULO-PAPULAR [None]
